FAERS Safety Report 4499007-8 (Version None)
Quarter: 2004Q4

REPORT INFORMATION
  Report Type: 
  Country: None (occurrence: None)
  Receive Date: 20041108
  Receipt Date: 20041022
  Transmission Date: 20050328
  Serious: No
  Sender: FDA-Public Use
  Company Number: A01200405328

PATIENT
  Sex: Male

DRUGS (2)
  1. CLOPIDOGREL BISULFATE [Suspect]
     Indication: STENT PLACEMENT
     Dosage: ORAL
     Route: 048
     Dates: start: 20040601, end: 20040801
  2. ACETYLSALICYLIC ACID SRT [Concomitant]

REACTIONS (1)
  - PERICARDIAL EFFUSION [None]
